FAERS Safety Report 7626723-9 (Version None)
Quarter: 2011Q3

REPORT INFORMATION
  Report Type: 
  Country: None (occurrence: None)
  Receive Date: 20110713
  Receipt Date: 20110628
  Transmission Date: 20111222
  Serious: Yes (Other)
  Sender: FDA-Public Use
  Company Number: 11-000727

PATIENT
  Sex: Female

DRUGS (2)
  1. MOISTUREL (DIMETHICONE) CREAM [Suspect]
     Indication: SCAR
     Dosage: TOPICAL
     Route: 061
     Dates: start: 19910101
  2. MOISTUREL (DIMETHICONE) CREAM [Suspect]
     Indication: DRY SKIN
     Dosage: TOPICAL
     Route: 061
     Dates: start: 19910101

REACTIONS (6)
  - APPLICATION SITE ERYTHEMA [None]
  - MASTECTOMY [None]
  - CHEST WALL MASS [None]
  - APPLICATION SITE IRRITATION [None]
  - IMPAIRED HEALING [None]
  - SCAR [None]
